FAERS Safety Report 5288790-X (Version None)
Quarter: 2007Q2

REPORT INFORMATION
  Report Type: 
  Country: None (occurrence: None)
  Receive Date: 20070405
  Receipt Date: 20070326
  Transmission Date: 20071010
  Serious: Yes (Congenital Anomaly, Other)
  Sender: FDA-Public Use
  Company Number: GB-ELI_LILLY_AND_COMPANY-GB200703005179

PATIENT

DRUGS (3)
  1. FLUOXETINE [Suspect]
     Route: 064
  2. ZOPICLONE [Concomitant]
     Route: 064
  3. FOLIC ACID [Concomitant]
     Route: 064

REACTIONS (4)
  - CLEFT PALATE [None]
  - CYANOSIS [None]
  - DRUG EXPOSURE DURING PREGNANCY [None]
  - SOMNOLENCE [None]
